FAERS Safety Report 4608809-6 (Version None)
Quarter: 2005Q1

REPORT INFORMATION
  Report Type: 
  Country: None (occurrence: None)
  Receive Date: 20050315
  Receipt Date: 20050310
  Transmission Date: 20050727
  Serious: Yes (Hospitalization, Other)
  Sender: FDA-Public Use
  Company Number: PHBS2005US03546

PATIENT
  Age: 45 Year
  Sex: Female

DRUGS (8)
  1. OLANZAPINE [Concomitant]
     Dosage: 10 MG/D
     Route: 065
  2. BENAZEPRIL HCL [Concomitant]
     Dosage: 20 MG/D
     Route: 065
  3. HALOPERIDOL [Concomitant]
     Dosage: 150 MG, TIW
     Route: 065
  4. HALOPERIDOL DECANOATE [Concomitant]
     Dosage: 150 MG, TIW
     Route: 065
  5. TAMOXIFEN CITRATE [Concomitant]
     Dosage: 20 MG/D
     Route: 065
  6. CLOZAPINE [Suspect]
     Indication: SCHIZOPHRENIA
     Dosage: 500 MG/D
     Route: 065
  7. CLOZAPINE [Suspect]
     Dosage: 25 MG/D
     Route: 065
  8. CLOZAPINE [Suspect]
     Dosage: 800 MG/D
     Route: 065

REACTIONS (9)
  - BREAST CANCER IN SITU [None]
  - COLONOSCOPY [None]
  - DRUG LEVEL DECREASED [None]
  - FAECAL INCONTINENCE [None]
  - FAECALOMA [None]
  - LEUKOPENIA [None]
  - MALIGNANT BREAST LUMP REMOVAL [None]
  - MEDICAL DIET [None]
  - NEUTROPENIA [None]
